FAERS Safety Report 7306709-4 (Version None)
Quarter: 2011Q1

REPORT INFORMATION
  Report Type: 
  Country: None (occurrence: None)
  Receive Date: 20110222
  Receipt Date: 20110215
  Transmission Date: 20110831
  Serious: Yes (Hospitalization, Other)
  Sender: FDA-Public Use
  Company Number: US-US-EMD SERONO, INC.-7042652

PATIENT
  Sex: Female

DRUGS (3)
  1. METHOCARBOMAL [Concomitant]
     Indication: MUSCLE SPASMS
  2. BACLOFEN [Concomitant]
     Indication: MUSCLE SPASMS
  3. REBIF [Suspect]
     Indication: MULTIPLE SCLEROSIS
     Route: 058
     Dates: start: 20030328

REACTIONS (7)
  - LIGAMENT RUPTURE [None]
  - ELECTROENCEPHALOGRAM ABNORMAL [None]
  - LOSS OF CONSCIOUSNESS [None]
  - GRAND MAL CONVULSION [None]
  - JOINT EFFUSION [None]
  - ANAESTHETIC COMPLICATION [None]
  - MULTIPLE SCLEROSIS RELAPSE [None]
